FAERS Safety Report 16066315 (Version 1)
Quarter: 2019Q2

REPORT INFORMATION
  Report Type: Spontaneous
  Country: US (occurrence: US)
  Receive Date: 20190312
  Receipt Date: 20190312
  Transmission Date: 20190711
  Serious: Yes (Hospitalization)
  Sender: FDA-Public Use
  Company Number: None

PATIENT
  Sex: Female

DRUGS (2)
  1. SEE ATTACHED [Concomitant]
  2. GAMUNEX [Suspect]
     Active Substance: HUMAN IMMUNOGLOBULIN G
     Indication: OESOPHAGITIS
     Route: 042
     Dates: start: 20170413

REACTIONS (5)
  - Headache [None]
  - Fatigue [None]
  - Musculoskeletal stiffness [None]
  - Neck pain [None]
  - Gait inability [None]
